FAERS Safety Report 8176759-7 (Version None)
Quarter: 2012Q1

REPORT INFORMATION
  Report Type: 
  Country: None (occurrence: None)
  Receive Date: 20120301
  Receipt Date: 20120217
  Transmission Date: 20120608
  Serious: Yes (Other)
  Sender: FDA-Public Use
  Company Number: JP-CELGENEUS-087-21660-12023015

PATIENT
  Sex: Female
  Weight: 43 kg

DRUGS (1)
  1. ABRAXANE [Suspect]
     Indication: BREAST CANCER METASTATIC
     Dosage: 198 MILLIGRAM
     Route: 050
     Dates: start: 20110708

REACTIONS (1)
  - CYSTOID MACULAR OEDEMA [None]
